FAERS Safety Report 7723875-7 (Version None)
Quarter: 2011Q3

REPORT INFORMATION
  Report Type: 
  Country: None (occurrence: None)
  Receive Date: 20110829
  Receipt Date: 20100811
  Transmission Date: 20111222
  Serious: Yes (Hospitalization)
  Sender: FDA-Public Use
  Company Number: GER/GER/10/0015247

PATIENT
  Age: 69 Year
  Sex: Male

DRUGS (3)
  1. LEVETIRACETAM [Concomitant]
  2. LAMOTRIGINE [Suspect]
     Indication: EPILEPSY
     Dosage: 300 MG, 1 IN 1 D,
  3. LAMOTRIGINE [Suspect]
     Indication: EPILEPSY
     Dosage: 300 MG, 1 IN 1 D,

REACTIONS (3)
  - ANTICONVULSANT DRUG LEVEL DECREASED [None]
  - PRODUCT FORMULATION ISSUE [None]
  - CONVULSION [None]
